FAERS Safety Report 8545897-9 (Version None)
Quarter: 2012Q3

REPORT INFORMATION
  Report Type: 
  Country: None (occurrence: None)
  Receive Date: 20120727
  Receipt Date: 20111117
  Transmission Date: 20120928
  Serious: No
  Sender: FDA-Public Use
  Company Number: US-ASTRAZENECA-2011SE70310

PATIENT
  Age: 80 Year
  Sex: Female
  Weight: 63.5 kg

DRUGS (4)
  1. NAMENDA [Concomitant]
     Indication: DEMENTIA ALZHEIMER'S TYPE
  2. ARICEPT [Concomitant]
     Indication: DEMENTIA ALZHEIMER'S TYPE
  3. LEXAPRO [Concomitant]
     Indication: DEMENTIA ALZHEIMER'S TYPE
  4. SEROQUEL [Suspect]
     Indication: DEMENTIA ALZHEIMER'S TYPE
     Route: 048

REACTIONS (4)
  - AGGRESSION [None]
  - OFF LABEL USE [None]
  - MOOD SWINGS [None]
  - DEPRESSION [None]
